FAERS Safety Report 6905314-9 (Version None)
Quarter: 2010Q3

REPORT INFORMATION
  Report Type: 
  Country: None (occurrence: None)
  Receive Date: 20100804
  Receipt Date: 20100721
  Transmission Date: 20110219
  Serious: No
  Sender: FDA-Public Use
  Company Number: US-B.I. PHARMACEUTICALS,INC./RIDGEFIELD-2010-BP-08453BP

PATIENT
  Sex: Male

DRUGS (3)
  1. ZANTAC [Suspect]
     Indication: DYSPEPSIA
     Dosage: 150 MG
     Route: 048
     Dates: start: 20100720
  2. ZEGERID [Concomitant]
     Indication: DYSPEPSIA
  3. MEDICATION NOT FURTHER SPECIFIED [Concomitant]
     Indication: ANXIETY

REACTIONS (1)
  - THERAPEUTIC REACTION TIME DECREASED [None]
